FAERS Safety Report 19327314 (Version 1)
Quarter: 2021Q2

REPORT INFORMATION
  Report Type: Spontaneous
  Country: US (occurrence: US)
  Receive Date: 20210528
  Receipt Date: 20210528
  Transmission Date: 20210717
  Serious: No
  Sender: FDA-Public Use
  Company Number: US-ORGANON-O2105USA001738

PATIENT
  Age: 29 Year
  Sex: Male

DRUGS (4)
  1. ALIROCUMAB [Suspect]
     Active Substance: ALIROCUMAB
     Dosage: 150 MILLIGRAM, EVERY 14 DAYS
     Dates: start: 2017
  2. COLESEVELAM [Suspect]
     Active Substance: COLESEVELAM
     Indication: HYPERCHOLESTEROLAEMIA
     Dosage: 3.75 GRAM, QD (DAILY)
  3. ALIROCUMAB [Suspect]
     Active Substance: ALIROCUMAB
     Indication: HYPERCHOLESTEROLAEMIA
     Dosage: 75 MILLIGRAM, EVERY 14 DAYS
     Dates: start: 2016
  4. ZETIA [Suspect]
     Active Substance: EZETIMIBE
     Indication: HYPERCHOLESTEROLAEMIA
     Dosage: 10 MG DAILY
     Route: 048

REACTIONS (1)
  - Drug ineffective [Unknown]
